FAERS Safety Report 22243541 (Version 1)
Quarter: 2023Q2

REPORT INFORMATION
  Report Type: Spontaneous
  Country: US (occurrence: US)
  Receive Date: 20230424
  Receipt Date: 20230424
  Transmission Date: 20230721
  Serious: No
  Sender: FDA-Public Use
  Company Number: US-009507513-2304USA000179

PATIENT
  Age: 78 Year
  Sex: Male

DRUGS (2)
  1. KEYTRUDA [Suspect]
     Active Substance: PEMBROLIZUMAB
     Indication: Renal cell carcinoma
     Dosage: 200 MG EVERY 3 WEEKS
     Dates: start: 20230224
  2. KEYTRUDA [Suspect]
     Active Substance: PEMBROLIZUMAB
     Dosage: 200 MG EVERY 3 WEEKS
     Dates: start: 20230322

REACTIONS (9)
  - Pain in extremity [Unknown]
  - Hypokinesia [Unknown]
  - Nodule [Unknown]
  - Fatigue [Unknown]
  - Malaise [Unknown]
  - Abdominal discomfort [Unknown]
  - Nausea [Unknown]
  - Arthralgia [Unknown]
  - Inappropriate schedule of product administration [Unknown]

NARRATIVE: CASE EVENT DATE: 20230101
